FAERS Safety Report 23266218 (Version 1)
Quarter: 2023Q4

REPORT INFORMATION
  Report Type: Report from Study
  Country: CO (occurrence: CO)
  Receive Date: 20231206
  Receipt Date: 20231206
  Transmission Date: 20240110
  Serious: Yes (Other)
  Sender: FDA-Public Use
  Company Number: CO-BAYER-2022A154269

PATIENT
  Sex: Male

DRUGS (6)
  1. EYLEA [Suspect]
     Active Substance: AFLIBERCEPT
     Indication: Diabetic retinal oedema
     Dosage: 2 MG, BOTH EYES, 40 MG/ML
     Route: 031
     Dates: start: 20220914, end: 20220914
  2. EYLEA [Suspect]
     Active Substance: AFLIBERCEPT
     Dosage: 2 MG, BOTH EYES, 40 MG/ML
     Route: 031
     Dates: start: 20221129, end: 20221129
  3. EYLEA [Suspect]
     Active Substance: AFLIBERCEPT
     Dosage: 2 MG, BOTH EYES, 40 MG/ML
     Route: 031
     Dates: start: 20230213, end: 20230213
  4. EYLEA [Suspect]
     Active Substance: AFLIBERCEPT
     Dosage: 2 MG, RIGHT EYE , 40 MG/ML
     Route: 031
     Dates: start: 20230516, end: 20230516
  5. EYLEA [Suspect]
     Active Substance: AFLIBERCEPT
     Dosage: 2 MG, RIGHT EYE , 40 MG/ML
     Route: 031
     Dates: start: 20230717, end: 20230717
  6. EYLEA [Suspect]
     Active Substance: AFLIBERCEPT
     Dosage: 2 MG, RIGHT EYE , 40 MG/ML
     Route: 031
     Dates: start: 20230906

REACTIONS (4)
  - Eye haemorrhage [Unknown]
  - Inappropriate schedule of product administration [Not Recovered/Not Resolved]
  - Inappropriate schedule of product administration [Not Recovered/Not Resolved]
  - Inappropriate schedule of product administration [Not Recovered/Not Resolved]

NARRATIVE: CASE EVENT DATE: 20220914
